FAERS Safety Report 9969944 (Version 1)
Quarter: 2014Q1

REPORT INFORMATION
  Report Type: Spontaneous
  Country: US (occurrence: None)
  Receive Date: 20140305
  Receipt Date: 20140305
  Transmission Date: 20141002
  Serious: Yes (Death)
  Sender: FDA-Public Use
  Company Number: None

PATIENT
  Age: 80 Year
  Sex: Male
  Weight: 62.3 kg

DRUGS (3)
  1. ROFLUMILAST [Suspect]
     Indication: HAEMATOLOGICAL MALIGNANCY
     Route: 048
     Dates: start: 20140128, end: 20140224
  2. NORMAL SALINE [Concomitant]
  3. AMIODARONE DRIP [Concomitant]

REACTIONS (4)
  - Renal failure acute [None]
  - Hypotension [None]
  - Atrial fibrillation [None]
  - Haemodynamic instability [None]
